FAERS Safety Report 4837871-0 (Version None)
Quarter: 2005Q4

REPORT INFORMATION
  Report Type: 
  Country: None (occurrence: None)
  Receive Date: 20051128
  Receipt Date: 20051114
  Transmission Date: 20060501
  Serious: Yes (Hospitalization)
  Sender: FDA-Public Use
  Company Number: FR-JNJFOC-20051003763

PATIENT
  Sex: Female

DRUGS (9)
  1. EPITOMAX [Suspect]
     Indication: EPILEPSY
     Route: 048
  2. BRISTOPEN [Concomitant]
  3. MIDAZOLAM HCL [Concomitant]
  4. FENTANYL [Concomitant]
  5. TEGRETOL [Concomitant]
  6. LAMICTAL [Concomitant]
  7. ALEPSAL [Concomitant]
  8. ALEPSAL [Concomitant]
  9. ALEPSAL [Concomitant]

REACTIONS (9)
  - ACUTE RESPIRATORY DISTRESS SYNDROME [None]
  - CSF PH DECREASED [None]
  - METABOLIC ACIDOSIS [None]
  - PLATELET COUNT INCREASED [None]
  - RESPIRATORY ALKALOSIS [None]
  - SKIN LESION [None]
  - STAPHYLOCOCCAL ABSCESS [None]
  - THERMAL BURN [None]
  - TRANSPLANT REJECTION [None]
